FAERS Safety Report 5403327-X (Version None)
Quarter: 2007Q3

REPORT INFORMATION
  Report Type: 
  Country: None (occurrence: None)
  Receive Date: 20070727
  Receipt Date: 20070716
  Transmission Date: 20080115
  Serious: Yes (Hospitalization, Other)
  Sender: FDA-Public Use
  Company Number: 235288K07USA

PATIENT
  Age: 48 Year
  Sex: Female
  Weight: 76.6579 kg

DRUGS (5)
  1. REBIF [Suspect]
     Indication: MULTIPLE SCLEROSIS
     Dosage: 44 MCG, 3 IN 1 WEEKS, SUBCUTANEOUS
     Route: 058
     Dates: start: 20040204
  2. ZOCOR [Concomitant]
  3. TRILEPTAL [Concomitant]
  4. GABITRIL [Concomitant]
  5. ULTRAM [Concomitant]

REACTIONS (5)
  - BACK INJURY [None]
  - BALANCE DISORDER [None]
  - FALL [None]
  - INTERVERTEBRAL DISC PROTRUSION [None]
  - RADICULITIS [None]
